FAERS Safety Report 8299773 (Version 4)
Quarter: 2012Q4

REPORT INFORMATION
  Report Type: 
  Country: US (occurrence: US)
  Receive Date: 20111219
  Receipt Date: 20121109
  Transmission Date: 20130627
  Serious: Yes (Other)
  Sender: FDA-Public Use
  Company Number: PHEH2011US011414

PATIENT
  Age: 75 None
  Sex: Female

DRUGS (12)
  1. RECLAST [Suspect]
     Indication: OSTEOPOROSIS
     Dosage: Yearly injection
     Dates: start: 20111117
  2. CALCIUM CARBONATE [Suspect]
     Dosage: 1 per day
     Route: 048
  3. TUMS E-X [Suspect]
     Dosage: 1 per day
     Route: 048
  4. ASPIRINE [Concomitant]
     Dosage: 81 mg, 1 x day
  5. PAXIL [Concomitant]
     Indication: DEPRESSION
     Dosage: 20 mg, 1 per day
     Dates: end: 20111130
  6. LIPITOR [Concomitant]
     Indication: BLOOD CHOLESTEROL INCREASED
     Dosage: 80 mg, 1 x day (bedtime)
  7. CLONAZEPAM [Concomitant]
     Dosage: 0.5 mg, 1 x day
  8. LISINOPRIL [Concomitant]
     Indication: HYPERTENSION
     Dosage: 10 mg, 1 per day
  9. ZETIA [Concomitant]
     Indication: BLOOD CHOLESTEROL
     Dosage: 10 mg, 1x day in the morning (recently she was taking 1/2 tablet)
  10. VITAMIN D [Concomitant]
  11. CALCIUM [Concomitant]
  12. MULTIVIT [Concomitant]

REACTIONS (18)
  - Depression [Not Recovered/Not Resolved]
  - Crying [Unknown]
  - Monoplegia [Unknown]
  - Feeling abnormal [Unknown]
  - Insomnia [Unknown]
  - Abdominal discomfort [Unknown]
  - Dyspnoea [Unknown]
  - Arthralgia [Unknown]
  - Myalgia [Unknown]
  - Nausea [Unknown]
  - Influenza like illness [Unknown]
  - Chills [Unknown]
  - Headache [Unknown]
  - Pain in extremity [Unknown]
  - Pain [Unknown]
  - Abdominal pain upper [Unknown]
  - Fatigue [Unknown]
  - Back pain [Unknown]
